FAERS Safety Report 4673563-9 (Version None)
Quarter: 2005Q2

REPORT INFORMATION
  Report Type: 
  Country: None (occurrence: None)
  Receive Date: 20050525
  Receipt Date: 20050510
  Transmission Date: 20051028
  Serious: Yes (Other)
  Sender: FDA-Public Use
  Company Number: AU-JNJFOC-20050505602

PATIENT
  Age: 17 Year
  Sex: Male

DRUGS (1)
  1. IBUPROFEN [Suspect]

REACTIONS (2)
  - ASTHMA [None]
  - CONDITION AGGRAVATED [None]
